FAERS Safety Report 5413766-9 (Version None)
Quarter: 2007Q3

REPORT INFORMATION
  Report Type: 
  Country: None (occurrence: None)
  Receive Date: 20070814
  Receipt Date: 20070802
  Transmission Date: 20080115
  Serious: Yes (Hospitalization)
  Sender: FDA-Public Use
  Company Number: JP-ELI_LILLY_AND_COMPANY-JP200705003226

PATIENT
  Age: 64 Year
  Sex: Female
  Weight: 46.2 kg

DRUGS (15)
  1. GEMCITABINE HCL [Suspect]
     Indication: GALLBLADDER CANCER STAGE IV
     Dosage: 1000 MG/M2, OTHER
     Route: 042
     Dates: start: 20070328, end: 20070328
  2. GEMCITABINE HCL [Suspect]
     Dosage: 1000 MG/M2, OTHER
     Route: 042
     Dates: start: 20070411, end: 20070411
  3. GEMCITABINE HCL [Suspect]
     Dosage: 1000 MG/M2, OTHER
     Route: 042
     Dates: start: 20070112, end: 20070112
  4. GEMCITABINE HCL [Suspect]
     Dosage: 1000 MG/M2, OTHER
     Route: 042
     Dates: start: 20070124, end: 20070124
  5. GEMCITABINE HCL [Suspect]
     Dosage: 1000 MG/M2, OTHER
     Route: 042
     Dates: start: 20070214, end: 20070214
  6. GEMCITABINE HCL [Suspect]
     Dosage: 1000 MG/M2, OTHER
     Route: 042
     Dates: start: 20070314, end: 20070314
  7. KYTRIL [Concomitant]
     Indication: PROPHYLAXIS
     Dosage: 3 MG, DAILY (1/D)
     Route: 042
     Dates: start: 20070112
  8. MAGNESIUM OXIDE [Concomitant]
     Indication: CONSTIPATION
     Dosage: 2 G, DAILY (1/D)
     Route: 048
  9. URSO 250 [Concomitant]
     Indication: HEPATIC FUNCTION ABNORMAL
     Dosage: 300 MG, DAILY (1/D)
     Route: 048
  10. BIO THREE [Concomitant]
     Indication: CONSTIPATION
     Dosage: 3 D/F, DAILY (1/D)
     Route: 048
     Dates: start: 20070101
  11. MARZULENE S [Concomitant]
     Indication: GASTRITIS
     Dosage: 3 G, DAILY (1/D)
     Route: 048
     Dates: start: 20070101
  12. AMOBAN [Concomitant]
     Indication: INSOMNIA
     Dosage: 7.5 MG, DAILY (1/D)
     Route: 048
     Dates: start: 20070101
  13. LASIX /USA/ [Concomitant]
     Indication: PLEURAL EFFUSION
     Dosage: 20 MG, DAILY (1/D)
     Route: 048
     Dates: start: 20070101, end: 20070314
  14. CLONAZEPAM [Concomitant]
     Indication: DEPRESSION
     Dosage: 2 D/F, DAILY (1/D)
     Route: 048
     Dates: start: 20070101, end: 20070129
  15. SENNOSIDE [Concomitant]
     Indication: CONSTIPATION
     Dosage: 24 MG, DAILY (1/D)
     Route: 048
     Dates: start: 20070101

REACTIONS (3)
  - C-REACTIVE PROTEIN INCREASED [None]
  - LEUKOPENIA [None]
  - LYMPHOCYTE COUNT DECREASED [None]
